FAERS Safety Report 6242967-5 (Version None)
Quarter: 2009Q2

REPORT INFORMATION
  Report Type: 
  Country: None (occurrence: None)
  Receive Date: 20090624
  Receipt Date: 20090612
  Transmission Date: 20091009
  Serious: Yes (Hospitalization)
  Sender: FDA-Public Use
  Company Number: GB-ELI_LILLY_AND_COMPANY-GB200904002992

PATIENT
  Sex: Male

DRUGS (18)
  1. HUMALOG [Suspect]
     Dosage: UNK, 3/D
     Route: 065
     Dates: end: 20090402
  2. HUMALOG [Suspect]
     Dosage: 8 U, 2/D
     Route: 065
     Dates: start: 20090401
  3. HUMALOG MIX 75/25 [Suspect]
     Dosage: 1 D/F, UNKNOWN
     Route: 065
     Dates: start: 20090403, end: 20090403
  4. HUMALOG MIX 75/25 [Suspect]
     Dosage: 3 D/F, UNKNOWN
     Route: 065
     Dates: start: 20090404, end: 20090404
  5. HUMALOG MIX 75/25 [Suspect]
     Dosage: 2 D/F, UNKNOWN
     Route: 065
     Dates: start: 20090405, end: 20090405
  6. TIOTROPIUM [Concomitant]
     Dosage: 18 UG, EACH MORNING
     Route: 055
  7. SERETIDE [Concomitant]
     Dosage: 2 D/F, 2/D
     Route: 055
  8. ASPIRIN [Concomitant]
     Dosage: 75 MG, EACH MORNING
     Route: 065
  9. ISOSORBIDE MONONITRATE [Concomitant]
     Dosage: 120 MG, EACH MORNING
     Route: 065
  10. ALBUTEROL [Concomitant]
     Dosage: 2 D/F, AS NEEDED
     Route: 055
  11. NITROGLYCERIN [Concomitant]
     Dosage: 2 D/F, AS NEEDED
     Route: 065
  12. LANTUS [Concomitant]
     Indication: DIABETES MELLITUS
     Dosage: 38 U, EACH MORNING
     Route: 065
  13. THEOPHYLLINE [Concomitant]
     Dosage: 200 MG, 2/D
     Route: 065
  14. FUROSEMIDE [Concomitant]
     Dosage: 40 MG, 2/D
     Route: 065
  15. PREDNISOLONE [Concomitant]
     Indication: CHRONIC OBSTRUCTIVE PULMONARY DISEASE
     Dosage: 10 MG, EACH MORNING
     Route: 065
  16. OMEPRAZOLE [Concomitant]
     Dosage: 10 MG, EACH MORNING
     Route: 065
  17. RISEDRONIC ACID [Concomitant]
     Dosage: 35 MG, WEEKLY (1/W)
     Route: 065
  18. CARBOCISTEINE [Concomitant]
     Dosage: 750 MG, 2/D
     Route: 065

REACTIONS (3)
  - BLOOD GLUCOSE FLUCTUATION [None]
  - CARDIAC FAILURE [None]
  - WRONG DRUG ADMINISTERED [None]
